FAERS Safety Report 10271573 (Version 2)
Quarter: 2014Q3

REPORT INFORMATION
  Report Type: Spontaneous
  Country: CA (occurrence: CA)
  Receive Date: 20140701
  Receipt Date: 20140701
  Transmission Date: 20150326
  Serious: Yes (Hospitalization)
  Sender: FDA-Public Use
  Company Number: CA-GILEAD-2014-0098589

PATIENT
  Age: 66 Year
  Sex: Female

DRUGS (12)
  1. SPIRACTIN                          /00006201/ [Concomitant]
  2. ASA [Concomitant]
     Active Substance: ASPIRIN
  3. REMODULIN [Concomitant]
     Active Substance: TREPROSTINIL
     Dosage: UNK
  4. MAGNESIUM [Concomitant]
     Active Substance: MAGNESIUM
  5. VITAMIN D [Concomitant]
     Active Substance: CHOLECALCIFEROL
  6. VITAMIN B12 NOS [Concomitant]
  7. AMBRISENTAN [Suspect]
     Active Substance: AMBRISENTAN
     Indication: PRODUCT USED FOR UNKNOWN INDICATION
     Dosage: 5 MG, QD
     Route: 048
     Dates: start: 20110329
  8. VITAMIN C [Concomitant]
     Active Substance: ASCORBIC ACID
  9. FUROSEMIDE. [Concomitant]
     Active Substance: FUROSEMIDE
  10. INSULIN [Concomitant]
     Active Substance: INSULIN NOS
  11. OXYGEN. [Concomitant]
     Active Substance: OXYGEN
  12. IRON [Concomitant]
     Active Substance: IRON

REACTIONS (6)
  - Nasopharyngitis [Not Recovered/Not Resolved]
  - Oedema peripheral [Recovering/Resolving]
  - Sinusitis [Not Recovered/Not Resolved]
  - Dyspnoea [Recovering/Resolving]
  - Laryngitis [Not Recovered/Not Resolved]
  - Cough [Not Recovered/Not Resolved]

NARRATIVE: CASE EVENT DATE: 20140321
